FAERS Safety Report 5424904-6 (Version None)
Quarter: 2007Q3

REPORT INFORMATION
  Report Type: 
  Country: None (occurrence: None)
  Receive Date: 20070824
  Receipt Date: 20070813
  Transmission Date: 20080115
  Serious: Yes (Hospitalization)
  Sender: FDA-Public Use
  Company Number: US-ELI_LILLY_AND_COMPANY-US200708002543

PATIENT
  Age: 66 Year
  Sex: Female

DRUGS (1)
  1. FORTEO [Suspect]
     Dates: start: 20061101

REACTIONS (4)
  - BACK PAIN [None]
  - DISLOCATION OF VERTEBRA [None]
  - NERVE ROOT COMPRESSION [None]
  - PAIN IN EXTREMITY [None]
